FAERS Safety Report 12393716 (Version 1)
Quarter: 2016Q2

REPORT INFORMATION
  Report Type: Spontaneous
  Country: ES (occurrence: ES)
  Receive Date: 20160523
  Receipt Date: 20160523
  Transmission Date: 20160815
  Serious: Yes (Hospitalization)
  Sender: FDA-Public Use
  Company Number: ES-BAXTER-2016BAX025916

PATIENT
  Age: 64 Year
  Sex: Female

DRUGS (2)
  1. GENOXAL [Suspect]
     Active Substance: CYCLOPHOSPHAMIDE
     Indication: RENAL VASCULITIS
     Dosage: 2ND CYCLE
     Route: 042
  2. GENOXAL [Suspect]
     Active Substance: CYCLOPHOSPHAMIDE
     Dosage: 3RD CYCLE
     Route: 042
     Dates: start: 20160405, end: 20160405

REACTIONS (5)
  - Hyperpyrexia [Recovered/Resolved]
  - Rash maculo-papular [Recovered/Resolved]
  - Condition aggravated [Recovered/Resolved]
  - Asthma [Unknown]
  - Chills [Unknown]

NARRATIVE: CASE EVENT DATE: 20160405
